FAERS Safety Report 8074140-2 (Version None)
Quarter: 2011Q4

REPORT INFORMATION
  Report Type: 
  Country: None (occurrence: None)
  Receive Date: 20111221
  Receipt Date: 20110317
  Transmission Date: 20120403
  Serious: Yes (Death)
  Sender: FDA-Public Use
  Company Number: PHHY2011US22633

PATIENT
  Sex: Male

DRUGS (11)
  1. IMODIUM [Concomitant]
  2. PRILOSEC [Concomitant]
  3. ATENOLOL [Concomitant]
  4. LISINOPRIL [Concomitant]
  5. DIGOXIN [Concomitant]
  6. DEMADEX [Concomitant]
  7. EXJADE [Suspect]
     Indication: IRON OVERLOAD
     Dosage: 1425 MG, QD, ORAL
     Route: 048
     Dates: start: 20100408
  8. EXJADE [Suspect]
     Indication: MYELODYSPLASTIC SYNDROME
     Dosage: 1425 MG, QD, ORAL
     Route: 048
     Dates: start: 20100408
  9. ATROVENT [Concomitant]
  10. DILANTIN [Concomitant]
  11. ADVAIR DISKUS (FLUTICASONE PROPIONATE, SALMETEROL XINAFOATE) [Concomitant]

REACTIONS (1)
  - NEOPLASM MALIGNANT [None]
